FAERS Safety Report 18938489 (Version 2)
Quarter: 2021Q1

REPORT INFORMATION
  Report Type: Spontaneous
  Country: US (occurrence: US)
  Receive Date: 20210224
  Receipt Date: 20210326
  Transmission Date: 20210420
  Serious: Yes (Other)
  Sender: FDA-Public Use
  Company Number: US-BAUSCH-BL-2021-005842

PATIENT
  Age: 82 Year
  Sex: Female

DRUGS (4)
  1. ROCKLATAN [Concomitant]
     Active Substance: LATANOPROST\NETARSUDIL MESYLATE
     Indication: MACULAR DEGENERATION
     Route: 047
  2. PROLENSA [Suspect]
     Active Substance: BROMFENAC SODIUM
     Indication: MACULAR OEDEMA
     Route: 047
     Dates: start: 20210116, end: 20210119
  3. DORZOLAMIDE [Concomitant]
     Active Substance: DORZOLAMIDE
     Indication: MACULAR DEGENERATION
     Route: 047
  4. COMBIGAN [Concomitant]
     Active Substance: BRIMONIDINE TARTRATE\TIMOLOL MALEATE
     Indication: MACULAR DEGENERATION
     Route: 047

REACTIONS (9)
  - Visual impairment [Not Recovered/Not Resolved]
  - Eye disorder [Recovered/Resolved]
  - Vision blurred [Not Recovered/Not Resolved]
  - Eye inflammation [Recovered/Resolved]
  - Eye pain [Recovered/Resolved]
  - Eye pruritus [Recovered/Resolved]
  - Balance disorder [Recovered/Resolved]
  - Eye irritation [Recovered/Resolved]
  - Foreign body sensation in eyes [Recovered/Resolved]

NARRATIVE: CASE EVENT DATE: 202101
